FAERS Safety Report 18762771 (Version 1)
Quarter: 2021Q1

REPORT INFORMATION
  Report Type: Spontaneous
  Country: US (occurrence: US)
  Receive Date: 20210119
  Receipt Date: 20210119
  Transmission Date: 20210419
  Serious: Yes (Death)
  Sender: FDA-Public Use
  Company Number: None

PATIENT
  Age: 93 Year
  Sex: Male
  Weight: 77 kg

DRUGS (3)
  1. RIVAROXABAN (RIVAROXABAN 15MG TAB) [Suspect]
     Active Substance: RIVAROXABAN
     Indication: CORONARY ARTERY DISEASE
     Route: 048
     Dates: start: 20191215, end: 20200708
  2. RIVAROXABAN (RIVAROXABAN 15MG TAB) [Suspect]
     Active Substance: RIVAROXABAN
     Indication: ATRIAL FIBRILLATION
     Route: 048
     Dates: start: 20191215, end: 20200708
  3. RIVAROXABAN (RIVAROXABAN 15MG TAB) [Suspect]
     Active Substance: RIVAROXABAN
     Indication: VASCULAR OPERATION
     Route: 048
     Dates: start: 20191215, end: 20200708

REACTIONS (4)
  - Head injury [None]
  - Fall [None]
  - Haemorrhage [None]
  - Haematoma [None]

NARRATIVE: CASE EVENT DATE: 20200708
